FAERS Safety Report 9993014 (Version 1)
Quarter: 2014Q1

REPORT INFORMATION
  Report Type: Spontaneous
  Country: US (occurrence: US)
  Receive Date: 20140310
  Receipt Date: 20140310
  Transmission Date: 20141002
  Serious: No
  Sender: FDA-Public Use
  Company Number: US-ABBVIE-13P-163-1081697-00

PATIENT
  Age: 37 Year
  Sex: Female
  Weight: 61.74 kg

DRUGS (2)
  1. LUPRON DEPOT [Suspect]
     Indication: DYSMENORRHOEA
     Dates: start: 20130422, end: 20130422
  2. LUPRON DEPOT-PED [Concomitant]
     Indication: PRODUCT USED FOR UNKNOWN INDICATION
     Dates: start: 20121201

REACTIONS (2)
  - Wrong drug administered [Unknown]
  - Off label use [Unknown]
